FAERS Safety Report 5677494-7 (Version None)
Quarter: 2008Q1

REPORT INFORMATION
  Report Type: 
  Country: None (occurrence: None)
  Receive Date: 20080324
  Receipt Date: 20080312
  Transmission Date: 20080703
  Serious: Yes (Hospitalization, Other)
  Sender: FDA-Public Use
  Company Number: US-PFIZER INC-2008024489

PATIENT
  Age: 48 Year
  Sex: Male
  Weight: 68 kg

DRUGS (6)
  1. LYRICA [Suspect]
     Indication: NEUROPATHY PERIPHERAL
     Route: 048
  2. PEG-INTRON [Suspect]
     Indication: HEPATITIS C
     Dosage: DAILY DOSE:1.5MCG-FREQ:QW
     Route: 058
  3. PEG-INTRON [Suspect]
     Route: 058
  4. RIBAVIRIN [Suspect]
     Indication: HEPATITIS C
     Dosage: DAILY DOSE:800MG-FREQ:QD
     Route: 048
  5. RIBAVIRIN [Suspect]
     Dosage: DAILY DOSE:600MG-FREQ:FREQUENCY: QD
     Route: 048
     Dates: start: 20070712, end: 20071001
  6. RIBAVIRIN [Suspect]
     Route: 048

REACTIONS (8)
  - BLOOD SODIUM DECREASED [None]
  - CANDIDIASIS [None]
  - DRY MOUTH [None]
  - HAEMOGLOBIN DECREASED [None]
  - MENTAL STATUS CHANGES [None]
  - ORAL PAIN [None]
  - OVERDOSE [None]
  - UNRESPONSIVE TO STIMULI [None]
